FAERS Safety Report 9452927 (Version 1)
Quarter: 2013Q3

REPORT INFORMATION
  Report Type: Spontaneous
  Country: US (occurrence: US)
  Receive Date: 20130812
  Receipt Date: 20130812
  Transmission Date: 20140515
  Serious: Yes (Other)
  Sender: FDA-Public Use
  Company Number: US-JNJFOC-20110402424

PATIENT
  Age: 66 Year
  Sex: Female
  Weight: 99.79 kg

DRUGS (8)
  1. STELARA [Suspect]
     Indication: PSORIASIS
     Route: 058
     Dates: start: 20110218
  2. STELARA [Suspect]
     Indication: PSORIASIS
     Route: 058
     Dates: start: 20110318, end: 20110323
  3. HUMIRA [Suspect]
     Indication: PRODUCT USED FOR UNKNOWN INDICATION
     Route: 065
  4. DETROL LA [Concomitant]
     Route: 065
  5. ASA [Concomitant]
     Route: 065
  6. PROTONIX [Concomitant]
     Route: 065
  7. METOPROLOL [Concomitant]
     Route: 065
  8. VYTORIN [Concomitant]
     Route: 065

REACTIONS (2)
  - Langerhans^ cell histiocytosis [Not Recovered/Not Resolved]
  - Urticaria [Recovered/Resolved]
